FAERS Safety Report 6960640-2 (Version None)
Quarter: 2010Q3

REPORT INFORMATION
  Report Type: 
  Country: None (occurrence: None)
  Receive Date: 20100901
  Receipt Date: 20100820
  Transmission Date: 20110219
  Serious: Yes (Death, Hospitalization)
  Sender: FDA-Public Use
  Company Number: DE-PFIZER INC-2010105086

PATIENT
  Age: 65 Year
  Sex: Male

DRUGS (10)
  1. SUNITINIB MALATE [Suspect]
     Indication: METASTATIC RENAL CELL CARCINOMA
     Dosage: UNK
     Dates: start: 20100728, end: 20100812
  2. SORAFENIB [Suspect]
     Indication: METASTATIC RENAL CELL CARCINOMA
     Dosage: UNK
     Dates: start: 20100122, end: 20100713
  3. COTRIM FORTE L.U.T. [Concomitant]
     Dosage: 960 MG, THREE TIMES PER WEEK
  4. RAMIPRIL [Concomitant]
     Dosage: 5 MG, 2X/DAY
  5. NORVASC [Concomitant]
     Dosage: 5 MG, 2X/DAY
  6. FORTECORTIN [Concomitant]
     Dosage: 1 MG, 2X/DAY
  7. ACETYLCYSTEINE [Concomitant]
     Dosage: UNK
  8. KALINOR RETARD [Concomitant]
     Dosage: UNK
  9. LASIX [Concomitant]
     Dosage: 40 MG, 2X/DAY
  10. FRAXIPARIN [Concomitant]
     Dosage: 0.8 ML, 1X/DAY

REACTIONS (2)
  - NEUTROPENIA [None]
  - PNEUMONIA [None]
